FAERS Safety Report 8854517 (Version 3)
Quarter: 2013Q1

REPORT INFORMATION
  Report Type: Report from Study
  Country: TR (occurrence: TR)
  Receive Date: 20121023
  Receipt Date: 20130315
  Transmission Date: 20140127
  Serious: Yes (Other)
  Sender: FDA-Public Use
  Company Number: TR-BAYER-2012-041814

PATIENT
  Age: 38 Year
  Sex: Female
  Weight: 80 kg

DRUGS (4)
  1. BETAFERON [Suspect]
     Indication: MULTIPLE SCLEROSIS
     Dosage: QOD IN THE EVENING
  2. DOXIUM [Concomitant]
     Indication: VENOUS INSUFFICIENCY
     Dosage: 500 MG, UNK
  3. NOOTROPIL [Concomitant]
     Dosage: 1200 MG, UNK
  4. IMURAN [Concomitant]
     Dosage: 50 MG, UNK

REACTIONS (14)
  - Tonsillar hypertrophy [Not Recovered/Not Resolved]
  - Dysphagia [None]
  - Headache [Recovered/Resolved]
  - Cardiac discomfort [Recovered/Resolved]
  - Dyspnoea [Recovered/Resolved]
  - Asthenia [None]
  - Fatigue [None]
  - Chills [None]
  - Chills [None]
  - Renal pain [Not Recovered/Not Resolved]
  - Nausea [Not Recovered/Not Resolved]
  - Asthenia [None]
  - Arthralgia [None]
  - Oropharyngeal pain [Not Recovered/Not Resolved]
